FAERS Safety Report 6505419-0 (Version None)
Quarter: 2009Q4

REPORT INFORMATION
  Report Type: 
  Country: None (occurrence: None)
  Receive Date: 20091218
  Receipt Date: 20091217
  Transmission Date: 20100525
  Serious: Yes (Hospitalization)
  Sender: FDA-Public Use
  Company Number: US-ROXANE LABORATORIES, INC.-2009-RO-00092RO

PATIENT
  Sex: Male
  Weight: 65 kg

DRUGS (21)
  1. PREDNISONE [Suspect]
     Indication: PROSTATE CANCER
     Dosage: 10 MG
     Route: 048
     Dates: start: 20070911, end: 20081014
  2. PREDNISONE [Suspect]
     Route: 048
     Dates: end: 20081014
  3. SU-011,248 [Suspect]
     Indication: PROSTATE CANCER
     Route: 048
     Dates: start: 20070828
  4. DOCETAXEL [Suspect]
     Indication: PROSTATE CANCER
     Route: 042
     Dates: start: 20070927
  5. ACETYLSALICYLIC ACID [Concomitant]
  6. ATENOLOL [Concomitant]
  7. CALTRATE [Concomitant]
  8. CARAFATE [Concomitant]
  9. CENTRUM SILVER [Concomitant]
  10. COLACE [Concomitant]
  11. IRON SULFATETHIAMIN COMPOUND TAB [Concomitant]
  12. FIBRE, DIETARY [Concomitant]
  13. TAMSULOSIN HYDROCHLORIDE [Concomitant]
  14. FOSAMAX [Concomitant]
  15. CHONDROITIN/ GLUCOSAMINE [Concomitant]
  16. PRILOSEC [Concomitant]
  17. LIPITOR [Concomitant]
  18. SYNTHROID [Concomitant]
  19. ZOLOFT [Concomitant]
  20. ULTRAM [Concomitant]
  21. REGLAN [Concomitant]

REACTIONS (1)
  - PNEUMONIA [None]
